FAERS Safety Report 7792765-6 (Version None)
Quarter: 2011Q4

REPORT INFORMATION
  Report Type: 
  Country: None (occurrence: None)
  Receive Date: 20111003
  Receipt Date: 20110923
  Transmission Date: 20120403
  Serious: Yes (Life-Threatening)
  Sender: FDA-Public Use
  Company Number: GB-BAXTER-2011BH030454

PATIENT
  Age: 5 Year
  Sex: Male

DRUGS (4)
  1. ETHRANE [Suspect]
     Indication: GENERAL ANAESTHESIA
     Route: 055
     Dates: start: 19960501, end: 19960501
  2. SEVOFLURANE [Suspect]
     Indication: DENTAL OPERATION
     Route: 055
     Dates: start: 19960501, end: 19960501
  3. ETHRANE [Suspect]
     Indication: DENTAL OPERATION
     Route: 055
     Dates: start: 19960501, end: 19960501
  4. SEVOFLURANE [Suspect]
     Indication: INDUCTION OF ANAESTHESIA
     Route: 055
     Dates: start: 19960501, end: 19960501

REACTIONS (2)
  - CLONUS [None]
  - APNOEA [None]
